FAERS Safety Report 26210864 (Version 1)
Quarter: 2025Q4

REPORT INFORMATION
  Report Type: Spontaneous
  Country: EU (occurrence: EU)
  Receive Date: 20251230
  Receipt Date: 20251230
  Transmission Date: 20260118
  Serious: Yes (Life-Threatening, Hospitalization, Disabling, Other)
  Sender: HETERO
  Company Number: EU-MLMSERVICE-20251127-PI730470-00291-1

PATIENT
  Age: 76 Year
  Sex: Male

DRUGS (3)
  1. ABIRATERONE [Interacting]
     Active Substance: ABIRATERONE
     Indication: Prostate cancer stage IV
     Dosage: ON TREATMENT FOR 4 YEARS
     Route: 065
     Dates: start: 2020
  2. ROSUVASTATIN [Interacting]
     Active Substance: ROSUVASTATIN
     Indication: Product use in unapproved indication
     Dosage: UNK
     Route: 065
     Dates: start: 202312
  3. LEUPROLIDE ACETATE [Concomitant]
     Active Substance: LEUPROLIDE ACETATE
     Indication: Prostate cancer stage IV
     Dosage: ON TREATMENT FOR 4 YEARS
     Route: 065
     Dates: start: 2020

REACTIONS (4)
  - Drug interaction [Unknown]
  - Acute kidney injury [Unknown]
  - Renal tubular necrosis [Unknown]
  - Rhabdomyolysis [Unknown]

NARRATIVE: CASE EVENT DATE: 20240101
